FAERS Safety Report 10444227 (Version 1)
Quarter: 2014Q3

REPORT INFORMATION
  Report Type: Spontaneous
  Country: US (occurrence: None)
  Receive Date: 20140908
  Receipt Date: 20140908
  Transmission Date: 20150326
  Serious: Yes (Death, Hospitalization, Other)
  Sender: FDA-Public Use
  Company Number: 2012US000751

PATIENT
  Age: 73 Year
  Sex: Female
  Weight: 64.6 kg

DRUGS (19)
  1. PROMETHAZINE [Concomitant]
     Active Substance: PROMETHAZINE\PROMETHAZINE HYDROCHLORIDE
  2. CALCIUM CARBONATE. [Concomitant]
     Active Substance: CALCIUM CARBONATE
  3. ENALAPRIL (ENALAPRIL MALEATE) [Concomitant]
  4. LACTASE [Concomitant]
     Active Substance: LACTASE
  5. OMEPRAZOLE. [Concomitant]
     Active Substance: OMEPRAZOLE
  6. ALBUTEROL (SALBUTAMOL SULFATE) [Concomitant]
  7. MIRALAX (MACROGOL) [Concomitant]
  8. PREDNISOLONE (PREDNISOLONE ACETATE) [Concomitant]
     Active Substance: PREDNISOLONE ACETATE
  9. ALLOPURINOL. [Concomitant]
     Active Substance: ALLOPURINOL
  10. LORATADINE. [Concomitant]
     Active Substance: LORATADINE
  11. GABAPENTIN. [Concomitant]
     Active Substance: GABAPENTIN
  12. REQUIP [Concomitant]
     Active Substance: ROPINIROLE HYDROCHLORIDE
  13. TRAMADOL (TRAMADOL HYDROCHLORIDE) [Suspect]
     Active Substance: TRAMADOL HYDROCHLORIDE
  14. ACYCLOVIR. [Concomitant]
     Active Substance: ACYCLOVIR
  15. METOPROLOL (METOPROLOL TARTRATE) [Concomitant]
     Active Substance: METOPROLOL TARTRATE
  16. PONATINIB (AP24534) TABLET [Suspect]
     Active Substance: PONATINIB
     Indication: ACUTE LYMPHOCYTIC LEUKAEMIA
     Route: 048
     Dates: start: 20110323, end: 20120708
  17. BUPROPION [Concomitant]
     Active Substance: BUPROPION
  18. FEXOFENADINE [Concomitant]
     Active Substance: FEXOFENADINE\FEXOFENADINE HYDROCHLORIDE
  19. NITROFURANTOIN. [Concomitant]
     Active Substance: NITROFURANTOIN

REACTIONS (8)
  - Mesenteric arterial occlusion [None]
  - Coeliac artery occlusion [None]
  - Hyperbilirubinaemia [None]
  - Atrial fibrillation [None]
  - Small intestinal obstruction [None]
  - Lung infection pseudomonal [None]
  - Leukaemoid reaction [None]
  - Cardiac failure congestive [None]

NARRATIVE: CASE EVENT DATE: 20120622
